FAERS Safety Report 9522644 (Version 1)
Quarter: 2013Q1

REPORT INFORMATION
  Report Type: Spontaneous
  Country: US (occurrence: None)
  Receive Date: 20130305
  Receipt Date: 20130305
  Transmission Date: 20140127
  Serious: Yes (Hospitalization)
  Sender: FDA-Public Use
  Company Number: 163-21880-12032273

PATIENT
  Age: 61 Year
  Sex: Male

DRUGS (17)
  1. REVLIMID (LENALIDOMIDE) (25 MILLIGRAM, CAPSULES) [Suspect]
     Indication: PRODUCT USED FOR UNKNOWN INDICATION
     Dosage: 25 MG, DAILY X 21 DAYS, PO
     Route: 048
     Dates: start: 20120225
  2. MORPHINE SULFATE (MURPHINE SULFATE) (UNKNOWN) [Concomitant]
  3. DIPHENHYDRAMINE (DIPHENHYDRAMINE) (CAPSULES) [Concomitant]
  4. PROMETHAZINE WITH CODEINE (GALENIC/CODEINE/PROMETHAZINE/) (UNKNOWN)? [Concomitant]
  5. DEXAMETHASONE (DEXAMETHASONE) (TABLETS) [Concomitant]
  6. HYDROCHLOROTHIAZIDE (HYDROCHLOROTHIAZIDE) (UNKNOWN) [Concomitant]
  7. HYDROCORTISONE (HYDROCORTISONE) (CREAM) [Concomitant]
  8. AMLODIPINE BESYLATE (AMLODIPINE BESILATE) (TABLETS) [Concomitant]
  9. ATE NOLOL (ATENOLOL) (TABLETS) [Concomitant]
  10. CYCLOBENZAPRINE (CYCLOBENZAPRINE) (TABLETS) [Concomitant]
  11. VITAMIN B12 (CYANOCOBALAMIN) (TABLETS) [Concomitant]
  12. ASPRIN (ACETYLSALICYLIC ACID) (TABLETS) [Concomitant]
  13. ALBUTEROL (SALBUTOMOL) (UNKNOWN) [Concomitant]
  14. PREDNISONE (PREDNISONE) (UNKNOWN) [Concomitant]
  15. FOLIC ACID (FOLIC ACID) (UNKNOWN) [Concomitant]
  16. LORAZEPAM (LORAZEPAM) (UNKNOWN) [Concomitant]
  17. FLOVENT (FLUTICASONE PROPIONATE) (UNKNOWN) [Concomitant]

REACTIONS (4)
  - Bronchitis [None]
  - Fatigue [None]
  - Nausea [None]
  - Asthenia [None]
